FAERS Safety Report 9210969 (Version 1)
Quarter: 2013Q2

REPORT INFORMATION
  Report Type: Spontaneous
  Country: US (occurrence: US)
  Receive Date: 20130404
  Receipt Date: 20130404
  Transmission Date: 20140414
  Serious: Yes (Other)
  Sender: FDA-Public Use
  Company Number: CHPA2013US005675

PATIENT
  Age: 28 Year
  Sex: Female

DRUGS (2)
  1. TRANSDERM SCOP [Suspect]
     Indication: DIZZINESS
     Dosage: 1 PATCH, UNK
     Route: 062
     Dates: start: 20130327, end: 20130329
  2. RITALIN [Concomitant]
     Dosage: 20 MG, TID

REACTIONS (3)
  - Hypertension [Unknown]
  - Constipation [Unknown]
  - Off label use [Unknown]
